FAERS Safety Report 5030713-2 (Version None)
Quarter: 2006Q2

REPORT INFORMATION
  Report Type: 
  Country: None (occurrence: None)
  Receive Date: 20060615
  Receipt Date: 20060531
  Transmission Date: 20061013
  Serious: Yes (Hospitalization)
  Sender: FDA-Public Use
  Company Number: GB200604003468

PATIENT
  Age: 69 Year
  Sex: Female

DRUGS (8)
  1. ZYPREXA [Suspect]
     Indication: BIPOLAR DISORDER
     Dosage: 2.5 MG; SEE IMAGE
     Dates: start: 20051118, end: 20060201
  2. ZYPREXA [Suspect]
     Indication: BIPOLAR DISORDER
     Dosage: 2.5 MG; SEE IMAGE
     Dates: start: 20050101
  3. BECLAZONE (BECLOMETASONE DIPROPIONATE) [Concomitant]
  4. SALBUTAMOL (SALBUTAMOL) [Concomitant]
  5. CARBAMAZEPINE [Concomitant]
  6. THYROXINE ^APS^ (LEVOTHYROXINE SODIUM) [Concomitant]
  7. DIAZEPAM [Concomitant]
  8. SERTRALINE [Concomitant]

REACTIONS (4)
  - CARDIAC FAILURE CONGESTIVE [None]
  - CHRONIC OBSTRUCTIVE PULMONARY DISEASE [None]
  - CONDITION AGGRAVATED [None]
  - WEIGHT INCREASED [None]
